FAERS Safety Report 7103386-2 (Version None)
Quarter: 2010Q4

REPORT INFORMATION
  Report Type: 
  Country: None (occurrence: None)
  Receive Date: 20101115
  Receipt Date: 20101105
  Transmission Date: 20110411
  Serious: Yes (Hospitalization)
  Sender: FDA-Public Use
  Company Number: PHHY2010CH74898

PATIENT
  Sex: Female

DRUGS (7)
  1. ZOMETA [Suspect]
     Indication: BREAST CANCER
     Dosage: 4 MG/3 TO 6 MONTHS
     Route: 042
     Dates: start: 20020101, end: 20090101
  2. ZOMETA [Suspect]
     Indication: METASTASES TO BONE
  3. AROMASIN [Concomitant]
     Indication: BREAST CANCER
     Dosage: UNK
  4. SINTROM [Concomitant]
  5. CALCIMAGON-D3 [Concomitant]
  6. TENORMIN [Concomitant]
  7. DAFLON [Concomitant]

REACTIONS (4)
  - BONE OPERATION [None]
  - FALL [None]
  - FEMUR FRACTURE [None]
  - PAIN IN EXTREMITY [None]
